FAERS Safety Report 23940969 (Version 1)
Quarter: 2024Q2

REPORT INFORMATION
  Report Type: Other
  Country: CH (occurrence: CH)
  Receive Date: 20240605
  Receipt Date: 20240605
  Transmission Date: 20240715
  Serious: Yes (Hospitalization, Other)
  Sender: FDA-Public Use
  Company Number: CH-Aarkish Pharmaceuticals NJ Inc.-2157777

PATIENT
  Age: 32 Year
  Sex: Male

DRUGS (1)
  1. ACETAZOLAMIDE [Suspect]
     Active Substance: ACETAZOLAMIDE
     Indication: Hereditary ataxia
     Route: 048

REACTIONS (3)
  - Choroidal effusion [Recovered/Resolved]
  - Product use in unapproved indication [Unknown]
  - Acute myopia [Recovered/Resolved]
